FAERS Safety Report 9137526 (Version 2)
Quarter: 2013Q2

REPORT INFORMATION
  Report Type: Spontaneous
  Country: US (occurrence: US)
  Receive Date: 20130304
  Receipt Date: 20130401
  Transmission Date: 20140414
  Serious: Yes (Hospitalization, Other)
  Sender: FDA-Public Use
  Company Number: US-ASTRAZENECA-2013SE12502

PATIENT
  Age: 75 Year
  Sex: Female
  Weight: 68.9 kg

DRUGS (8)
  1. LISINOPRIL [Suspect]
     Route: 048
  2. CRESTOR [Suspect]
     Indication: BLOOD CHOLESTEROL ABNORMAL
     Route: 048
     Dates: start: 201211, end: 201211
  3. BRILINTA [Suspect]
     Indication: PLATELET DISORDER
     Route: 048
     Dates: start: 20121114, end: 20121114
  4. BRILINTA [Suspect]
     Indication: PLATELET DISORDER
     Route: 048
     Dates: start: 201211
  5. BENADRYL [Suspect]
     Route: 065
  6. INAPAMIDINE [Concomitant]
     Indication: HYPERTENSION
     Route: 048
  7. ASPIRIN [Concomitant]
     Indication: PLATELET DISORDER
     Route: 048
  8. LIVALO [Concomitant]
     Indication: BLOOD CHOLESTEROL ABNORMAL
     Route: 048

REACTIONS (16)
  - Sciatic nerve injury [Recovering/Resolving]
  - Procedural haemorrhage [Recovered/Resolved]
  - Thrombosis in device [Recovering/Resolving]
  - Pain in extremity [Unknown]
  - Chest pain [Unknown]
  - Nausea [Unknown]
  - Dyspnoea [Unknown]
  - Increased appetite [Not Recovered/Not Resolved]
  - Weight increased [Not Recovered/Not Resolved]
  - Contusion [Recovering/Resolving]
  - Excoriation [Unknown]
  - Headache [Unknown]
  - Pruritus [Recovered/Resolved]
  - Swelling face [Unknown]
  - Oedema mouth [Unknown]
  - Aversion [Unknown]
